FAERS Safety Report 18661491 (Version 1)
Quarter: 2020Q4

REPORT INFORMATION
  Report Type: Report from Study
  Country: KR (occurrence: KR)
  Receive Date: 20201224
  Receipt Date: 20201224
  Transmission Date: 20210114
  Serious: Yes (Death)
  Sender: FDA-Public Use
  Company Number: KR-DSJP-DSJ-2020-139207AA

PATIENT
  Age: 78 Year
  Sex: Male
  Weight: 50 kg

DRUGS (12)
  1. CONCOR [Concomitant]
     Active Substance: BISOPROLOL FUMARATE
     Indication: HYPERTENSION
     Dosage: 1 DF, QD
     Route: 048
     Dates: start: 20180804
  2. ALDACTONE [Concomitant]
     Active Substance: SPIRONOLACTONE
     Indication: HYPERTENSION
     Dosage: 25 MG, QD
     Route: 048
     Dates: start: 20180806
  3. ALBIS [Concomitant]
     Active Substance: BISMUTH SUBCITRATE\RANITIDINE HYDROCHLORIDE\SUCRALFATE
     Indication: GASTRITIS PROPHYLAXIS
     Dosage: 1 DF, BID
     Route: 048
     Dates: start: 20180806
  4. PHOSTEN [Concomitant]
     Indication: PNEUMONIA ASPIRATION
     Dosage: 20 ML, QD
     Route: 042
     Dates: start: 20180804, end: 20180814
  5. EDOXABAN [Suspect]
     Active Substance: EDOXABAN TOSYLATE
     Indication: PRODUCT USED FOR UNKNOWN INDICATION
     Dosage: 30 MG, QD
     Route: 048
     Dates: start: 20180807
  6. LANSTON [Concomitant]
     Active Substance: LANSOPRAZOLE
     Indication: GASTRITIS PROPHYLAXIS
     Dosage: 1 DF, QD
     Route: 048
     Dates: start: 20180805
  7. LIPITOR [Concomitant]
     Active Substance: ATORVASTATIN CALCIUM
     Indication: CARDIOVASCULAR EVENT PROPHYLAXIS
     Dosage: 1 DF, QD
     Route: 048
     Dates: start: 20180803
  8. TRAJENTA DUO [Concomitant]
     Active Substance: LINAGLIPTIN\METFORMIN HYDROCHLORIDE
     Indication: DIABETES MELLITUS
     Dosage: 1 DF, BID
     Route: 048
     Dates: start: 20180803
  9. HEXAMEDINE [Concomitant]
     Indication: PROPHYLAXIS
     Dosage: UNK(PRN), AS NEEDED
     Route: 049
     Dates: start: 20180803
  10. HEPARIN SODIUM. [Concomitant]
     Active Substance: HEPARIN SODIUM
     Dosage: 5 ML, QD
     Route: 042
     Dates: start: 20180802, end: 20180806
  11. HEXAMEDINE [Concomitant]
     Indication: STOMATITIS
  12. PIPERACILLIN AND TAZOBACTAM [Concomitant]
     Active Substance: PIPERACILLIN SODIUM\TAZOBACTAM SODIUM
     Indication: PNEUMONIA ASPIRATION
     Dosage: 4.5 G, QID
     Route: 042
     Dates: start: 20180802, end: 20180816

REACTIONS (1)
  - Death [Fatal]

NARRATIVE: CASE EVENT DATE: 20180830
